FAERS Safety Report 8588139-0 (Version None)
Quarter: 2012Q3

REPORT INFORMATION
  Report Type: 
  Country: None (occurrence: None)
  Receive Date: 20120813
  Receipt Date: 20120806
  Transmission Date: 20120928
  Serious: Yes (Other)
  Sender: FDA-Public Use
  Company Number: US-PFIZER INC-2012180661

PATIENT
  Age: 54 Year
  Sex: Male
  Weight: 118 kg

DRUGS (5)
  1. AZOR [Concomitant]
     Indication: HYPERTENSION
     Dosage: UNK
  2. CLONIDINE [Concomitant]
     Indication: HYPERTENSION
     Dosage: UNK
  3. CARVEDILOL [Concomitant]
     Indication: HYPERTENSION
     Dosage: UNK
  4. NEURONTIN [Suspect]
     Indication: DIABETIC NEUROPATHY
  5. NEURONTIN [Suspect]
     Indication: NERVE INJURY
     Dosage: 900 MG((3 OF 300MG), 4X/DAY
     Route: 048

REACTIONS (2)
  - CEREBROVASCULAR ACCIDENT [None]
  - ATRIAL FIBRILLATION [None]
